FAERS Safety Report 14569027 (Version 1)
Quarter: 2018Q1

REPORT INFORMATION
  Report Type: Report from Study
  Country: US (occurrence: US)
  Receive Date: 20180223
  Receipt Date: 20180223
  Transmission Date: 20180509
  Serious: Yes (Hospitalization)
  Sender: FDA-Public Use
  Company Number: US-TEVA-2018-US-861989

PATIENT
  Age: 42 Year
  Sex: Female

DRUGS (1)
  1. COPAXONE [Suspect]
     Active Substance: GLATIRAMER ACETATE
     Indication: MULTIPLE SCLEROSIS
     Route: 058
     Dates: start: 20180116, end: 20180123

REACTIONS (7)
  - Loss of consciousness [Unknown]
  - Hypertension [Recovered/Resolved]
  - Immediate post-injection reaction [Unknown]
  - Heart rate decreased [Unknown]
  - Injection site erythema [Unknown]
  - Anaphylactic reaction [Unknown]
  - Injection site urticaria [Recovered/Resolved]

NARRATIVE: CASE EVENT DATE: 20180118
